FAERS Safety Report 4846172-6 (Version None)
Quarter: 2005Q4

REPORT INFORMATION
  Report Type: 
  Country: None (occurrence: None)
  Receive Date: 20051202
  Receipt Date: 20051202
  Transmission Date: 20060501
  Serious: No
  Sender: FDA-Public Use
  Company Number: None

PATIENT
  Sex: Male
  Weight: 96 kg

DRUGS (6)
  1. CYTARABINE [Suspect]
     Indication: ACUTE MYELOID LEUKAEMIA
     Dosage: SEE IMAGE
     Dates: start: 20051110, end: 20051118
  2. CYTARABINE [Suspect]
     Indication: ACUTE MYELOID LEUKAEMIA
     Dosage: SEE IMAGE
     Dates: start: 20051110
  3. MYLOTARG [Suspect]
     Dosage: SEE IMAGE
     Dates: start: 20051114, end: 20051114
  4. IDARUBICIN HCL [Suspect]
     Dosage: SEE IMAGE
     Dates: start: 20051110, end: 20051112
  5. LIPITOR [Concomitant]
  6. ZOSYN [Concomitant]

REACTIONS (5)
  - ABDOMINAL PAIN UPPER [None]
  - JAUNDICE [None]
  - LIVER FUNCTION TEST ABNORMAL [None]
  - REFRACTORINESS TO PLATELET TRANSFUSION [None]
  - VENOOCCLUSIVE DISEASE [None]
